FAERS Safety Report 6190724-0 (Version None)
Quarter: 2009Q2

REPORT INFORMATION
  Report Type: 
  Country: None (occurrence: None)
  Receive Date: 20090508
  Receipt Date: 20080331
  Transmission Date: 20091009
  Serious: Yes (Other)
  Sender: FDA-Public Use
  Company Number: 46835

PATIENT
  Age: 35 Year
  Sex: Male

DRUGS (2)
  1. ADRIAMYCIN PFS [Suspect]
     Indication: CHEMOTHERAPY
     Dosage: 58MG IV
     Route: 042
     Dates: start: 20080130
  2. BLEOMYCIN SULFATE [Suspect]
     Indication: CHEMOTHERAPY
     Dosage: 73MG
     Dates: start: 20080130

REACTIONS (3)
  - BACK PAIN [None]
  - NAUSEA [None]
  - PRURITUS [None]
